FAERS Safety Report 12930615 (Version 1)
Quarter: 2016Q4

REPORT INFORMATION
  Report Type: Spontaneous
  Country: US (occurrence: US)
  Receive Date: 20161111
  Receipt Date: 20161111
  Transmission Date: 20170207
  Serious: Yes (Hospitalization)
  Sender: FDA-Public Use
  Company Number: None

PATIENT
  Age: 80 Year
  Sex: Female
  Weight: 57.8 kg

DRUGS (2)
  1. AZD1775 ASTRAZENECA [Suspect]
     Active Substance: INVESTIGATIONAL PRODUCT
     Indication: COLON CANCER
     Dosage: ?          OTHER FREQUENCY:BID X 3 DAYS;?
     Route: 048
     Dates: start: 20160922, end: 20161013
  2. IRINOTECAN THYMOORGAN PHARMAZIE [Suspect]
     Active Substance: IRINOTECAN HYDROCHLORIDE
     Indication: COLON CANCER
     Dosage: ?          OTHER FREQUENCY:Q2WKS;?
     Route: 042
     Dates: start: 20160922, end: 20161013

REACTIONS (15)
  - Gait disturbance [None]
  - Retching [None]
  - Neutropenia [None]
  - Hypertension [None]
  - Anaemia [None]
  - Diarrhoea [None]
  - Asthenia [None]
  - Vomiting [None]
  - Enterocolitis [None]
  - Thrombocytopenia [None]
  - Abdominal pain lower [None]
  - Nausea [None]
  - Disease progression [None]
  - Deep vein thrombosis [None]
  - Abdominal pain [None]

NARRATIVE: CASE EVENT DATE: 20161017
